FAERS Safety Report 20085796 (Version 1)
Quarter: 2021Q4

REPORT INFORMATION
  Report Type: Spontaneous
  Country: US (occurrence: None)
  Receive Date: 20211117
  Receipt Date: 20211117
  Transmission Date: 20220303
  Serious: No
  Sender: FDA-Public Use
  Company Number: None

PATIENT
  Age: 31 Year
  Sex: Female
  Weight: 69.85 kg

DRUGS (1)
  1. PARAGARD T 380A [Suspect]
     Active Substance: COPPER

REACTIONS (12)
  - Pain [None]
  - Mental disorder [None]
  - Abdominal distension [None]
  - Abdominal pain [None]
  - Ovarian cyst [None]
  - Dyspareunia [None]
  - Libido decreased [None]
  - Headache [None]
  - Feeling abnormal [None]
  - Anxiety [None]
  - Depression [None]
  - Abnormal uterine bleeding [None]

NARRATIVE: CASE EVENT DATE: 20211115
